FAERS Safety Report 23057846 (Version 1)
Quarter: 2023Q4

REPORT INFORMATION
  Report Type: Report from Study
  Country: EG (occurrence: EG)
  Receive Date: 20231012
  Receipt Date: 20231012
  Transmission Date: 20240109
  Serious: Yes (Other)
  Sender: FDA-Public Use
  Company Number: EG-SANDOZ-SDZ2023EG040977

PATIENT
  Sex: Male
  Weight: 12.35 kg

DRUGS (1)
  1. OMNITROPE [Suspect]
     Active Substance: SOMATROPIN
     Indication: Osteochondrodysplasia
     Dosage: 0.4 MG/DAY
     Route: 058

REACTIONS (4)
  - Insomnia [Not Recovered/Not Resolved]
  - Overdose [Unknown]
  - Drug administered in wrong device [Unknown]
  - Off label use [Unknown]
